FAERS Safety Report 4832050-5 (Version None)
Quarter: 2005Q4

REPORT INFORMATION
  Report Type: 
  Country: None (occurrence: None)
  Receive Date: 20051116
  Receipt Date: 20051107
  Transmission Date: 20060501
  Serious: Yes (Other)
  Sender: FDA-Public Use
  Company Number: S05-USA-04867-01

PATIENT
  Age: 54 Year
  Sex: Male

DRUGS (1)
  1. THYROID TAB [Suspect]
     Indication: HYPOTHYROIDISM
     Dosage: 90 MG QD PO
     Route: 048
     Dates: start: 20000101

REACTIONS (3)
  - COMMINUTED FRACTURE [None]
  - FALL [None]
  - OSTEOPOROSIS [None]
